FAERS Safety Report 15037585 (Version 1)
Quarter: 2018Q2

REPORT INFORMATION
  Report Type: Spontaneous
  Country: JP (occurrence: JP)
  Receive Date: 20180620
  Receipt Date: 20180620
  Transmission Date: 20180711
  Serious: Yes (Other)
  Sender: FDA-Public Use
  Company Number: JP-MYLANLABS-2018M1043046

PATIENT
  Age: 33 Year
  Sex: Male

DRUGS (3)
  1. BETAMETHASONE. [Concomitant]
     Active Substance: BETAMETHASONE
     Indication: PRODUCT USED FOR UNKNOWN INDICATION
     Dosage: 5 TIMES DAILY (INSTRUCTED TO USE EVERY HOUR)
     Route: 065
  2. DICLOFENAC [Suspect]
     Active Substance: DICLOFENAC
     Indication: PRODUCT USED FOR UNKNOWN INDICATION
     Dosage: 5 TIMES PER DAY (PRESCRIBED 3 TIMES DAILY FOR 3 DAYS)
     Route: 061
  3. LEVOFLOXACIN. [Concomitant]
     Active Substance: LEVOFLOXACIN
     Indication: PRODUCT USED FOR UNKNOWN INDICATION
     Dosage: 5 TIMES DAILY
     Route: 065

REACTIONS (3)
  - Ulcerative keratitis [Recovering/Resolving]
  - Persistent corneal epithelial defect [Recovering/Resolving]
  - Corneal infiltrates [Recovering/Resolving]
